FAERS Safety Report 4532121-7 (Version None)
Quarter: 2004Q4

REPORT INFORMATION
  Report Type: 
  Country: None (occurrence: None)
  Receive Date: 20041217
  Receipt Date: 20041208
  Transmission Date: 20050328
  Serious: No
  Sender: FDA-Public Use
  Company Number: 2004PK02081

PATIENT
  Age: 41 Year
  Sex: Female

DRUGS (4)
  1. ZOLADEX [Suspect]
     Indication: BREAST CANCER
     Dosage: 3.6 MG Q4WK SQ
     Route: 058
     Dates: start: 20021201, end: 20041001
  2. TAMOXIFEN CITRATE [Concomitant]
  3. CARBAMAZEPINE [Concomitant]
  4. COPAXONE [Concomitant]

REACTIONS (2)
  - CONDITION AGGRAVATED [None]
  - LEUKOENCEPHALOMYELITIS [None]
